FAERS Safety Report 23939117 (Version 1)
Quarter: 2024Q2

REPORT INFORMATION
  Report Type: Report from Study
  Country: US (occurrence: US)
  Receive Date: 20240604
  Receipt Date: 20240604
  Transmission Date: 20240715
  Serious: Yes (Other)
  Sender: FDA-Public Use
  Company Number: US-ABBVIE-5783016

PATIENT
  Sex: Female

DRUGS (1)
  1. RINVOQ [Suspect]
     Active Substance: UPADACITINIB
     Indication: Product used for unknown indication
     Route: 048
     Dates: start: 20221001

REACTIONS (6)
  - Musculoskeletal disorder [Unknown]
  - Tuberculosis [Unknown]
  - Thyroid disorder [Unknown]
  - Hypertension [Unknown]
  - Joint warmth [Unknown]
  - Unevaluable event [Unknown]
